FAERS Safety Report 7518028-1 (Version None)
Quarter: 2011Q2

REPORT INFORMATION
  Report Type: 
  Country: None (occurrence: None)
  Receive Date: 20110602
  Receipt Date: 20110527
  Transmission Date: 20111010
  Serious: Yes (Hospitalization)
  Sender: FDA-Public Use
  Company Number: NL-AMGEN-NLDSP2011023244

PATIENT
  Age: 57 Year
  Sex: Female
  Weight: 76 kg

DRUGS (17)
  1. EMEND                              /01627301/ [Concomitant]
  2. HYDROCHLOROTHIAZIDE [Concomitant]
  3. PANTOPRAZOL                        /01263202/ [Concomitant]
  4. PRIMPERAN                          /00041901/ [Concomitant]
  5. CIPROFLOXACIN HCL [Concomitant]
  6. PLAQUENIL [Concomitant]
  7. BRICANYL [Concomitant]
  8. PERSANTIN [Concomitant]
  9. FLUCONAZOLE [Concomitant]
  10. ATENOLOL ACCORD [Concomitant]
  11. DOXORUBICIN HCL [Concomitant]
  12. EZETIMIBE [Concomitant]
  13. NEULASTA [Suspect]
     Indication: CHEMOTHERAPY
     Dosage: 6 MG, Q3WK
     Route: 058
     Dates: start: 20110406
  14. DEXAMETHASONE [Concomitant]
  15. ACETYLSALICYL.ACID W/CAFFE./CODE. [Concomitant]
  16. DOCETAXEL [Concomitant]
  17. CYCLOPHOSPHAMIDE [Concomitant]

REACTIONS (7)
  - BONE PAIN [None]
  - ORAL CANDIDIASIS [None]
  - OESOPHAGEAL CANDIDIASIS [None]
  - DEHYDRATION [None]
  - MUCOSAL INFLAMMATION [None]
  - WHITE BLOOD CELL COUNT DECREASED [None]
  - GASTROINTESTINAL CANDIDIASIS [None]
